FAERS Safety Report 8427149-0 (Version None)
Quarter: 2012Q2

REPORT INFORMATION
  Report Type: 
  Country: None (occurrence: None)
  Receive Date: 20120611
  Receipt Date: 20120531
  Transmission Date: 20120825
  Serious: Yes (Congenital Anomaly)
  Sender: FDA-Public Use
  Company Number: CH-ASTRAZENECA-2012SE36622

PATIENT
  Age: 0 Week

DRUGS (3)
  1. SYMBICORT [Suspect]
     Indication: ASTHMA
     Dosage: AS NECESSARY
     Route: 064
  2. ZYRTEC [Suspect]
     Indication: HYPERSENSITIVITY
     Dosage: AS NEEDED
     Route: 064
  3. ANDREAFOL [Concomitant]
     Route: 064

REACTIONS (2)
  - TRISOMY 18 [None]
  - HYDROPS FOETALIS [None]
